FAERS Safety Report 16844426 (Version 1)
Quarter: 2019Q3

REPORT INFORMATION
  Report Type: Spontaneous
  Country: CA (occurrence: CA)
  Receive Date: 20190924
  Receipt Date: 20190924
  Transmission Date: 20191005
  Serious: Yes (Hospitalization, Other)
  Sender: FDA-Public Use
  Company Number: CA-GLAXOSMITHKLINE-CA2019AMR171684

PATIENT
  Age: 36 Year
  Sex: Female

DRUGS (1)
  1. BENLYSTA [Suspect]
     Active Substance: BELIMUMAB
     Indication: PLANTAR FASCIAL FIBROMATOSIS
     Dosage: 570 MG, Z(4WEEKS)
     Route: 042

REACTIONS (5)
  - Tenderness [Unknown]
  - Systemic lupus erythematosus [Unknown]
  - Osteoarthritis [Unknown]
  - Pruritus generalised [Unknown]
  - Rash erythematous [Unknown]

NARRATIVE: CASE EVENT DATE: 20190908
